FAERS Safety Report 7829628-3 (Version None)
Quarter: 2011Q4

REPORT INFORMATION
  Report Type: 
  Country: None (occurrence: None)
  Receive Date: 20111021
  Receipt Date: 20111012
  Transmission Date: 20120403
  Serious: Yes (Hospitalization)
  Sender: FDA-Public Use
  Company Number: US-BIOGENIDEC-2011BI037256

PATIENT
  Age: 43 Year
  Sex: Male

DRUGS (10)
  1. PSYLLIUM [Concomitant]
     Indication: CONSTIPATION
  2. ALBUTEROL [Concomitant]
     Indication: BRONCHITIS
  3. CYNACOBALAMIN [Concomitant]
     Indication: VITAMIN B12 DEFICIENCY
  4. MIRTAZAPINE [Concomitant]
     Indication: DEPRESSION
  5. MODAFANIL [Concomitant]
     Indication: FATIGUE
  6. GABAPENTIN [Concomitant]
     Indication: PAIN
  7. CHOLECALCIFEROL [Concomitant]
     Indication: VITAMIN D DEFICIENCY
  8. TYSABRI [Suspect]
     Indication: MULTIPLE SCLEROSIS
     Route: 042
     Dates: start: 20100201, end: 20110818
  9. DOCUSATE [Concomitant]
     Indication: CONSTIPATION
  10. OMEPRAZOLE [Concomitant]
     Indication: GASTROOESOPHAGEAL REFLUX DISEASE

REACTIONS (3)
  - BRONCHITIS [None]
  - MOBILITY DECREASED [None]
  - FISTULA [None]
